FAERS Safety Report 9784209 (Version 2)
Quarter: 2013Q4

REPORT INFORMATION
  Report Type: Report from Study
  Country: DE (occurrence: DE)
  Receive Date: 20131226
  Receipt Date: 20131231
  Transmission Date: 20140711
  Serious: Yes (Life-Threatening, Hospitalization)
  Sender: FDA-Public Use
  Company Number: DE-TEVA-453167USA

PATIENT
  Age: 74 Year
  Sex: Male
  Weight: 86 kg

DRUGS (4)
  1. BENDAMUSTINE [Suspect]
     Dosage: UNKNOWN/D
     Route: 042
     Dates: start: 20131106, end: 20131205
  2. LENALIDOMIDE [Suspect]
     Route: 048
     Dates: start: 20131106
  3. DEXAMETHASONE [Suspect]
     Route: 048
     Dates: start: 20131106
  4. GABAPENTIN [Concomitant]
     Indication: NEUROPATHY PERIPHERAL
     Route: 048
     Dates: start: 20131127, end: 20131213

REACTIONS (1)
  - Epilepsy [Recovered/Resolved]
